FAERS Safety Report 9633918 (Version 1)
Quarter: 2013Q4

REPORT INFORMATION
  Report Type: Spontaneous
  Country: US (occurrence: None)
  Receive Date: 20131017
  Receipt Date: 20131017
  Transmission Date: 20140711
  Serious: No
  Sender: FDA-Public Use
  Company Number: CM13-0026

PATIENT
  Sex: 0

DRUGS (1)
  1. LIDOCAINE HCL [Suspect]
     Indication: ANAESTHESIA
     Dosage: N/A

REACTIONS (2)
  - Device breakage [None]
  - Foreign body [None]
